FAERS Safety Report 7747704-0 (Version None)
Quarter: 2011Q3

REPORT INFORMATION
  Report Type: 
  Country: None (occurrence: None)
  Receive Date: 20110913
  Receipt Date: 20110901
  Transmission Date: 20111222
  Serious: Yes (Other)
  Sender: FDA-Public Use
  Company Number: US-ELI_LILLY_AND_COMPANY-US200910005533

PATIENT
  Sex: Male

DRUGS (3)
  1. NOVOLOG [Concomitant]
     Indication: DIABETES MELLITUS
     Dosage: UNK UNK, PRN
  2. HUMULIN N [Suspect]
     Indication: DIABETES MELLITUS
     Dosage: UNK
     Dates: start: 19940101
  3. HUMULIN N [Suspect]
     Dosage: UNK
     Dates: start: 19940101

REACTIONS (3)
  - BLINDNESS [None]
  - MACULAR DEGENERATION [None]
  - VISUAL ACUITY REDUCED [None]
